FAERS Safety Report 11075971 (Version 1)
Quarter: 2015Q2

REPORT INFORMATION
  Report Type: Spontaneous
  Country: GB (occurrence: GB)
  Receive Date: 20150429
  Receipt Date: 20150429
  Transmission Date: 20150821
  Serious: Yes (Other)
  Sender: FDA-Public Use
  Company Number: GB-TEVA-558503ACC

PATIENT
  Age: 45 Year
  Sex: Female
  Weight: 65 kg

DRUGS (7)
  1. VENTOLIN [Concomitant]
     Active Substance: ALBUTEROL SULFATE
     Dosage: INHALE TWO DOSES AS NEEDED.
     Route: 055
     Dates: start: 20131104
  2. NAPROXEN. [Concomitant]
     Active Substance: NAPROXEN
     Dosage: TAKE ONE TWICE DAILY AS REQUIRED.
     Dates: start: 20150325
  3. PERMETHRIN. [Concomitant]
     Active Substance: PERMETHRIN
     Dosage: USE AS DIRECTED
     Dates: start: 20150206, end: 20150208
  4. QVAR [Concomitant]
     Active Substance: BECLOMETHASONE DIPROPIONATE
     Dosage: 4 DOSAGE FORMS DAILY;
     Route: 055
     Dates: start: 20131104
  5. ZOPICLONE [Concomitant]
     Active Substance: ZOPICLONE
     Dosage: TAKE ONE OR TWO AT NIGHT FOR UP TO 5 DAYS.
     Dates: start: 20150402, end: 20150403
  6. GABAPENTIN. [Suspect]
     Active Substance: GABAPENTIN
     Dates: start: 20150415
  7. ZAPAIN [Concomitant]
     Active Substance: ACETAMINOPHEN\CODEINE PHOSPHATE
     Dosage: TAKE 1 OR 2 4 TIMES/DAY AS REQUIRED
     Dates: start: 20150325, end: 20150414

REACTIONS (3)
  - Depressed mood [Recovered/Resolved]
  - Feeling abnormal [Unknown]
  - Suicidal ideation [Unknown]

NARRATIVE: CASE EVENT DATE: 20150415
